FAERS Safety Report 12601969 (Version 1)
Quarter: 2016Q3

REPORT INFORMATION
  Report Type: Spontaneous
  Country: US (occurrence: US)
  Receive Date: 20160728
  Receipt Date: 20160728
  Transmission Date: 20161109
  Serious: No
  Sender: FDA-Public Use
  Company Number: US-TAKEDA-2016TUS012832

PATIENT
  Age: 64 Year
  Sex: Female
  Weight: 93.6 kg

DRUGS (8)
  1. MYLANTA [Concomitant]
     Active Substance: ALUMINUM HYDROXIDE\DIMETHICONE\MAGNESIUM HYDROXIDE
     Dosage: UNK
     Route: 048
  2. QUAZEPAM. [Concomitant]
     Active Substance: QUAZEPAM
     Dosage: UNK
     Route: 048
  3. ROZEREM [Suspect]
     Active Substance: RAMELTEON
     Indication: SLEEP DISORDER
     Dosage: 8 MG, QD
     Route: 048
     Dates: start: 20160718
  4. LEVEMIR [Concomitant]
     Active Substance: INSULIN DETEMIR
     Indication: DIABETES MELLITUS
     Dosage: UNK
  5. ARICEPT [Concomitant]
     Active Substance: DONEPEZIL HYDROCHLORIDE
     Indication: DEMENTIA
     Dosage: UNK
     Route: 048
  6. TYLENOL [Concomitant]
     Active Substance: ACETAMINOPHEN
     Dosage: UNK
     Route: 048
  7. NOVOLOG [Concomitant]
     Active Substance: INSULIN ASPART
     Indication: DIABETES MELLITUS
     Dosage: UNK
  8. MULTIVITAMIN                       /00097801/ [Concomitant]
     Active Substance: VITAMINS
     Indication: SUPPLEMENTATION THERAPY
     Dosage: UNK
     Route: 048

REACTIONS (1)
  - Sedation [Unknown]

NARRATIVE: CASE EVENT DATE: 20160719
